FAERS Safety Report 5816266-7 (Version None)
Quarter: 2008Q3

REPORT INFORMATION
  Report Type: 
  Country: None (occurrence: None)
  Receive Date: 20080717
  Receipt Date: 20080717
  Transmission Date: 20090109
  Serious: Yes (Other)
  Sender: FDA-Public Use
  Company Number: None

PATIENT
  Sex: Female

DRUGS (1)
  1. CRYSELLE [Suspect]
     Indication: METRORRHAGIA
     Dosage: 1 DAILY

REACTIONS (1)
  - METRORRHAGIA [None]
